FAERS Safety Report 16994633 (Version 2)
Quarter: 2019Q4

REPORT INFORMATION
  Report Type: Report from Study
  Country: BE (occurrence: BE)
  Receive Date: 20191105
  Receipt Date: 20191114
  Transmission Date: 20200122
  Serious: No
  Sender: FDA-Public Use
  Company Number: BE-BEH-2019108883

PATIENT
  Age: 3 Year
  Sex: Male

DRUGS (1)
  1. HIZENTRA [Suspect]
     Active Substance: HUMAN IMMUNOGLOBULIN G
     Indication: PRIMARY IMMUNODEFICIENCY SYNDROME
     Dosage: UNK
     Route: 058
     Dates: start: 20191030

REACTIONS (1)
  - Injection site pain [Recovered/Resolved]

NARRATIVE: CASE EVENT DATE: 20191030
